FAERS Safety Report 7598396-5 (Version None)
Quarter: 2011Q3

REPORT INFORMATION
  Report Type: 
  Country: None (occurrence: None)
  Receive Date: 20110708
  Receipt Date: 20110628
  Transmission Date: 20111222
  Serious: Yes (Hospitalization, Disabling)
  Sender: FDA-Public Use
  Company Number: JP-GILEAD-E2B_00001360

PATIENT
  Sex: Male

DRUGS (9)
  1. LIORESAL [Concomitant]
     Route: 048
  2. ATP [Concomitant]
     Indication: AMYOTROPHIC LATERAL SCLEROSIS
     Dates: start: 20100101
  3. LAMIVUDINE [Suspect]
     Indication: HEPATITIS B
     Route: 048
     Dates: start: 20040101
  4. HEPSERA [Suspect]
     Indication: HEPATITIS B
     Dosage: 10MG PER DAY
     Route: 048
     Dates: start: 20050530
  5. FAMOTIDINE [Concomitant]
     Route: 048
  6. AMLODIPINE [Concomitant]
     Indication: HYPERTENSION
  7. RILUTEK [Concomitant]
     Indication: AMYOTROPHIC LATERAL SCLEROSIS
     Route: 048
     Dates: start: 20100101
  8. LEXIN [Concomitant]
     Indication: AMYOTROPHIC LATERAL SCLEROSIS
  9. LOXOPROFEN [Concomitant]
     Indication: PAIN

REACTIONS (2)
  - MULTIPLE FRACTURES [None]
  - CHEST PAIN [None]
